FAERS Safety Report 14606351 (Version 2)
Quarter: 2018Q2

REPORT INFORMATION
  Report Type: Spontaneous
  Country: FR (occurrence: FR)
  Receive Date: 20180307
  Receipt Date: 20180410
  Transmission Date: 20180711
  Serious: Yes (Death)
  Sender: FDA-Public Use
  Company Number: FR-INCYTE CORPORATION-2018IN001926

PATIENT

DRUGS (4)
  1. VELCADE [Concomitant]
     Active Substance: BORTEZOMIB
     Indication: DERMATOMYOSITIS
     Dosage: UNK
     Route: 065
     Dates: start: 20180217
  2. CICLOSPORINE [Concomitant]
     Active Substance: CYCLOSPORINE
     Indication: DERMATOMYOSITIS
     Dosage: UNK
     Route: 065
  3. DEXAMETHASONE. [Concomitant]
     Active Substance: DEXAMETHASONE
     Indication: DERMATOMYOSITIS
     Dosage: UNK
     Route: 065
  4. JAKAVI [Suspect]
     Active Substance: RUXOLITINIB
     Indication: DERMATOMYOSITIS
     Dosage: 5 MG, QD (ON EVENING)
     Route: 065
     Dates: start: 20180217, end: 20180228

REACTIONS (4)
  - Product use in unapproved indication [Unknown]
  - Death [Fatal]
  - Incorrect route of drug administration [Unknown]
  - Inappropriate schedule of drug administration [Unknown]

NARRATIVE: CASE EVENT DATE: 20180217
